FAERS Safety Report 5435361-8 (Version None)
Quarter: 2007Q3

REPORT INFORMATION
  Report Type: 
  Country: None (occurrence: None)
  Receive Date: 20070828
  Receipt Date: 20070828
  Transmission Date: 20080115
  Serious: Yes (Hospitalization)
  Sender: FDA-Public Use
  Company Number: None

PATIENT
  Sex: Female
  Weight: 57.61 kg

DRUGS (2)
  1. CISPLATIN [Suspect]
     Dosage: 50 MG
  2. TAXOL [Suspect]
     Dosage: 114 MG

REACTIONS (3)
  - HAEMOGLOBIN DECREASED [None]
  - PLATELET COUNT DECREASED [None]
  - UROSEPSIS [None]
